FAERS Safety Report 5015297-7 (Version None)
Quarter: 2006Q2

REPORT INFORMATION
  Report Type: 
  Country: None (occurrence: None)
  Receive Date: 20060530
  Receipt Date: 20060530
  Transmission Date: 20061013
  Serious: Yes (Hospitalization)
  Sender: FDA-Public Use
  Company Number: None

PATIENT
  Age: 51 Year
  Sex: Female
  Weight: 65.318 kg

DRUGS (2)
  1. BEVACIZUMAB 10MG/ KG [Suspect]
     Dosage: BEVACIZUMAB   10MG/KG
     Dates: end: 20051205
  2. TARCEVA [Suspect]
     Dosage: TARCEVA 100MG PO QD
     Route: 048
     Dates: end: 20051128

REACTIONS (10)
  - ANAEMIA [None]
  - DRUG DOSE OMISSION [None]
  - HYPOKALAEMIA [None]
  - HYPOTENSION [None]
  - IMMUNOSUPPRESSION [None]
  - INADEQUATE DIET [None]
  - ODYNOPHAGIA [None]
  - ORAL INTAKE REDUCED [None]
  - PNEUMONIA ASPIRATION [None]
  - TREATMENT NONCOMPLIANCE [None]
